FAERS Safety Report 23441481 (Version 1)
Quarter: 2024Q1

REPORT INFORMATION
  Report Type: Spontaneous
  Country: US (occurrence: US)
  Receive Date: 20240125
  Receipt Date: 20240125
  Transmission Date: 20240410
  Serious: No
  Sender: FDA-Public Use
  Company Number: US-TAKEDA-2024TUS005545

PATIENT
  Age: 24 Year
  Sex: Male

DRUGS (1)
  1. ENTYVIO [Suspect]
     Active Substance: VEDOLIZUMAB
     Indication: Crohn^s disease
     Dosage: UNK
     Route: 042
     Dates: start: 202311

REACTIONS (4)
  - Malaise [Not Recovered/Not Resolved]
  - Infusion site coldness [Not Recovered/Not Resolved]
  - Muscle spasms [Not Recovered/Not Resolved]
  - Flatulence [Not Recovered/Not Resolved]
